FAERS Safety Report 7497691-8 (Version None)
Quarter: 2011Q2

REPORT INFORMATION
  Report Type: 
  Country: None (occurrence: None)
  Receive Date: 20110523
  Receipt Date: 20110513
  Transmission Date: 20111010
  Serious: Yes (Other)
  Sender: FDA-Public Use
  Company Number: US-ASTRAZENECA-2011SE29062

PATIENT
  Age: 69 Year
  Sex: Female
  Weight: 81.6 kg

DRUGS (4)
  1. HERCEPTIN [Concomitant]
  2. PROTONIX [Concomitant]
  3. FASLODEX [Suspect]
     Route: 030
     Dates: start: 20100101
  4. TOPROL-XL [Concomitant]
     Route: 048

REACTIONS (2)
  - FOOT FRACTURE [None]
  - ARTHRALGIA [None]
